FAERS Safety Report 9904536 (Version 2)
Quarter: 2014Q1

REPORT INFORMATION
  Report Type: Spontaneous
  Country: US (occurrence: US)
  Receive Date: 20140218
  Receipt Date: 20140303
  Transmission Date: 20141002
  Serious: No
  Sender: FDA-Public Use
  Company Number: US-B.I. PHARMACEUTICALS,INC./RIDGEFIELD-2014-BI-06833BP

PATIENT
  Sex: Female

DRUGS (8)
  1. MIRAPEX [Suspect]
     Indication: RESTLESS LEGS SYNDROME
     Dosage: 1.5 MG
     Route: 048
  2. OMEPRAZOLE [Concomitant]
     Indication: GASTROOESOPHAGEAL REFLUX DISEASE
     Dosage: 40 MG
     Route: 048
  3. SIMVASTATIN [Concomitant]
     Indication: BLOOD CHOLESTEROL INCREASED
     Dosage: 40 MG
     Route: 048
  4. HYDROXIZINE [Concomitant]
     Indication: INSOMNIA
     Dosage: 25 MG
     Route: 048
  5. MECLIZINE [Concomitant]
     Indication: VERTIGO
     Dosage: 25 MG
     Route: 048
  6. CLOBETASOL [Concomitant]
     Indication: PSORIASIS
     Route: 061
  7. VITAMIN B 12 [Concomitant]
     Route: 065
  8. VITAMIN E [Concomitant]
     Dosage: DOSE PER APPLICATION: 400 UNITS; DAILY DOSE: 400 UNITS
     Route: 048

REACTIONS (4)
  - Contusion [Not Recovered/Not Resolved]
  - Pollakiuria [Recovered/Resolved]
  - Diplopia [Not Recovered/Not Resolved]
  - Vision blurred [Not Recovered/Not Resolved]
